FAERS Safety Report 9305175 (Version 1)
Quarter: 2013Q2

REPORT INFORMATION
  Report Type: Spontaneous
  Country: MA (occurrence: MA)
  Receive Date: 20130523
  Receipt Date: 20130523
  Transmission Date: 20140414
  Serious: Yes (Hospitalization)
  Sender: FDA-Public Use
  Company Number: PHHY2013MA050929

PATIENT
  Age: 57 Year
  Sex: Female

DRUGS (4)
  1. ACLASTA [Suspect]
     Indication: OSTEOPOROSIS POSTMENOPAUSAL
     Dosage: 1 DF, UNK
     Route: 042
     Dates: start: 20130430
  2. DOLIPRANE [Concomitant]
     Dosage: 1 G, BID
     Route: 048
     Dates: start: 20130430
  3. ALGANTIL [Concomitant]
     Dosage: 200 MG, QD
     Route: 048
     Dates: start: 20130430
  4. CELESTENE [Concomitant]
     Dosage: 2 MG, 1 TO 2 PER DAY
     Route: 048

REACTIONS (4)
  - Haematemesis [Recovering/Resolving]
  - Abdominal pain upper [Recovering/Resolving]
  - Vomiting [Recovering/Resolving]
  - Pyrexia [Recovering/Resolving]
